FAERS Safety Report 8231777-5 (Version None)
Quarter: 2012Q1

REPORT INFORMATION
  Report Type: 
  Country: None (occurrence: None)
  Receive Date: 20120323
  Receipt Date: 20120321
  Transmission Date: 20120608
  Serious: Yes (Other)
  Sender: FDA-Public Use
  Company Number: GB-ROCHE-1051344

PATIENT
  Age: 31 Year
  Sex: Male
  Weight: 67.2 kg

DRUGS (6)
  1. COPEGUS [Concomitant]
     Dates: start: 20101206
  2. METHADONE HCL [Concomitant]
     Dates: start: 20111209
  3. ACETAMINOPHEN [Concomitant]
     Dates: start: 20101229
  4. PEGYLATED INTERFERON NOS [Concomitant]
     Dates: start: 20101206
  5. IBUPROFEN [Concomitant]
     Dates: start: 20101103
  6. PEGASYS [Suspect]
     Indication: HEPATITIS C
     Dates: start: 20120220

REACTIONS (2)
  - HYPOAESTHESIA [None]
  - PERONEAL NERVE PALSY [None]
